FAERS Safety Report 25920272 (Version 1)
Quarter: 2025Q4

REPORT INFORMATION
  Report Type: Spontaneous
  Country: US (occurrence: US)
  Receive Date: 20251014
  Receipt Date: 20251014
  Transmission Date: 20260118
  Serious: Yes (Life-Threatening, Hospitalization)
  Sender: AMGEN
  Company Number: US-AMGEN-USASP2025199318

PATIENT
  Age: 19 Year
  Sex: Female

DRUGS (1)
  1. RITUXIMAB [Suspect]
     Active Substance: RITUXIMAB
     Indication: Thrombotic thrombocytopenic purpura
     Dosage: UNK
     Route: 065

REACTIONS (4)
  - Cardiomyopathy [Recovered/Resolved]
  - Thrombotic thrombocytopenic purpura [Unknown]
  - Tissue injury [Unknown]
  - Off label use [Unknown]
